FAERS Safety Report 9916479 (Version 1)
Quarter: 2014Q1

REPORT INFORMATION
  Report Type: Spontaneous
  Country: GB (occurrence: None)
  Receive Date: 20140219
  Receipt Date: 20140219
  Transmission Date: 20141002
  Serious: Yes (Other)
  Sender: FDA-Public Use
  Company Number: 2191283

PATIENT
  Age: 43 Year
  Sex: Male
  Weight: 115 kg

DRUGS (8)
  1. DEXMEDETOMIDINE HYDROCHLORIDE [Suspect]
     Indication: AGITATION
     Route: 051
     Dates: start: 20140119, end: 20140123
  2. DEXMEDETOMIDINE HYDROCHLORIDE [Suspect]
     Indication: SEDATIVE THERAPY
     Route: 051
     Dates: start: 20140119, end: 20140123
  3. CHLORHEXIDINE [Concomitant]
  4. ENOXAPARIN [Concomitant]
  5. LACTULOSE [Concomitant]
  6. OMEPRAZOLE [Concomitant]
  7. SENNA [Concomitant]
  8. TAZOCIN [Concomitant]

REACTIONS (3)
  - Rash pruritic [None]
  - Pyrexia [None]
  - Sepsis [None]
